FAERS Safety Report 13727227 (Version 1)
Quarter: 2017Q3

REPORT INFORMATION
  Report Type: Spontaneous
  Country: US (occurrence: US)
  Receive Date: 20170707
  Receipt Date: 20170707
  Transmission Date: 20171127
  Serious: Yes (Disabling)
  Sender: FDA-Public Use
  Company Number: None

PATIENT
  Age: 66 Year
  Sex: Male
  Weight: 78.75 kg

DRUGS (6)
  1. BABY ASPIRIN [Concomitant]
     Active Substance: ASPIRIN
  2. IRBESARTAN. [Concomitant]
     Active Substance: IRBESARTAN
  3. METOPROLOL. [Concomitant]
     Active Substance: METOPROLOL
  4. LEVOFLOXACIN. [Suspect]
     Active Substance: LEVOFLOXACIN
     Indication: PROSTATITIS
     Dosage: ?          OTHER STRENGTH:MG;QUANTITY:14 TABLET(S);?
     Route: 048
     Dates: start: 20170412, end: 20170425
  5. FINASTERIDE. [Concomitant]
     Active Substance: FINASTERIDE
  6. MULTIVITAMIN [Concomitant]
     Active Substance: VITAMINS

REACTIONS (6)
  - Tendon rupture [None]
  - Tinnitus [None]
  - Depression [None]
  - Tendonitis [None]
  - Neuropathy peripheral [None]
  - Anxiety [None]

NARRATIVE: CASE EVENT DATE: 20170503
